FAERS Safety Report 13687233 (Version 1)
Quarter: 2017Q2

REPORT INFORMATION
  Report Type: Spontaneous
  Country: US (occurrence: US)
  Receive Date: 20170623
  Receipt Date: 20170623
  Transmission Date: 20170830
  Serious: No
  Sender: FDA-Public Use
  Company Number: US-MAYNE PHARMA-2016MYN001399

PATIENT
  Age: 44 Year
  Sex: Female
  Weight: 71.73 kg

DRUGS (1)
  1. CLARITHROMYCIN. [Suspect]
     Active Substance: CLARITHROMYCIN
     Indication: SINUSITIS
     Route: 048
     Dates: start: 20160603, end: 20160604

REACTIONS (3)
  - Headache [Unknown]
  - Ageusia [Unknown]
  - Swelling face [Unknown]

NARRATIVE: CASE EVENT DATE: 20160603
